FAERS Safety Report 17957023 (Version 3)
Quarter: 2020Q3

REPORT INFORMATION
  Report Type: Spontaneous
  Country: US (occurrence: US)
  Receive Date: 20200629
  Receipt Date: 20200806
  Transmission Date: 20201103
  Serious: Yes (Other)
  Sender: FDA-Public Use
  Company Number: US-TEVA-2020-US-1793283

PATIENT
  Age: 73 Year
  Sex: Female

DRUGS (6)
  1. JANUVIA [Concomitant]
     Active Substance: SITAGLIPTIN PHOSPHATE
     Indication: DIABETES MELLITUS
  2. METFORMIN HYDROCHLORIDE. [Suspect]
     Active Substance: METFORMIN HYDROCHLORIDE
     Dosage: 2000 MILLIGRAM DAILY;
     Route: 065
     Dates: start: 201911, end: 202001
  3. METFORMIN HYDROCHLORIDE. [Suspect]
     Active Substance: METFORMIN HYDROCHLORIDE
     Indication: DIABETES MELLITUS
     Dosage: TAKING METFORMIN FOR OVER 20 YEARS
     Route: 065
     Dates: end: 20200604
  4. AMLODIPINE BESYLATE. [Concomitant]
     Active Substance: AMLODIPINE BESYLATE
     Indication: HYPERTENSION
  5. PANTOPRAZOLE [Concomitant]
     Active Substance: PANTOPRAZOLE
     Indication: GASTROOESOPHAGEAL REFLUX DISEASE
  6. GLIMEPRIDE [Concomitant]
     Active Substance: GLIMEPIRIDE
     Indication: DIABETES MELLITUS

REACTIONS (3)
  - Blindness unilateral [Not Recovered/Not Resolved]
  - Expired product administered [Unknown]
  - Hepatic cancer [Not Recovered/Not Resolved]

NARRATIVE: CASE EVENT DATE: 202001
